FAERS Safety Report 6811098-5 (Version None)
Quarter: 2010Q2

REPORT INFORMATION
  Report Type: 
  Country: None (occurrence: None)
  Receive Date: 20100630
  Receipt Date: 20090827
  Transmission Date: 20101027
  Serious: No
  Sender: FDA-Public Use
  Company Number: US-PFIZER INC-2008154077

PATIENT
  Sex: Female

DRUGS (2)
  1. ESTRING [Suspect]
     Indication: ATROPHIC VULVOVAGINITIS
     Dosage: 2 MG, EVERY 3 MONTHS
  2. VAGIFEM [Concomitant]

REACTIONS (1)
  - VULVOVAGINAL DISCOMFORT [None]
